FAERS Safety Report 6853843-9 (Version None)
Quarter: 2010Q3

REPORT INFORMATION
  Report Type: 
  Country: None (occurrence: None)
  Receive Date: 20100717
  Receipt Date: 20080107
  Transmission Date: 20110219
  Serious: No
  Sender: FDA-Public Use
  Company Number: US-PFIZER INC-2007106198

PATIENT
  Sex: Female
  Weight: 59.1 kg

DRUGS (4)
  1. CHANTIX [Suspect]
     Indication: SMOKING CESSATION THERAPY
     Route: 048
     Dates: start: 20070801
  2. PREMARIN [Concomitant]
     Indication: HYSTERECTOMY
  3. CLONAZEPAM [Concomitant]
     Indication: ANXIETY
  4. VITAMINS [Concomitant]

REACTIONS (3)
  - ABNORMAL DREAMS [None]
  - COUGH [None]
  - RHINORRHOEA [None]
